FAERS Safety Report 4979679-1 (Version None)
Quarter: 2006Q2

REPORT INFORMATION
  Report Type: 
  Country: None (occurrence: None)
  Receive Date: 20060418
  Receipt Date: 20060407
  Transmission Date: 20061013
  Serious: Yes (Death, Hospitalization)
  Sender: FDA-Public Use
  Company Number: 200611421GDS

PATIENT
  Age: 76 Year
  Sex: Female

DRUGS (6)
  1. MOXIFLOXACIN HCL [Suspect]
     Indication: CUTANEOUS TUBERCULOSIS
     Dosage: 400 MG, QD, ORAL
     Route: 048
     Dates: start: 20051231, end: 20060209
  2. CEMIDON 300 B6 (ISONIAZID) [Suspect]
     Indication: CUTANEOUS TUBERCULOSIS
     Dosage: 300/50 MG, QD, ORAL
     Route: 048
     Dates: start: 20051231, end: 20060209
  3. PYRAZINAMIDE [Suspect]
     Indication: CUTANEOUS TUBERCULOSIS
     Dosage: 250 MG, QD, ORAL
     Route: 048
     Dates: start: 20051231, end: 20060209
  4. DIGOXIN [Concomitant]
  5. SINTROM [Concomitant]
  6. EUTIROX [Concomitant]

REACTIONS (1)
  - HEPATITIS CHOLESTATIC [None]
